FAERS Safety Report 7875155-7 (Version None)
Quarter: 2011Q4

REPORT INFORMATION
  Report Type: 
  Country: None (occurrence: None)
  Receive Date: 20111031
  Receipt Date: 20111019
  Transmission Date: 20120403
  Serious: No
  Sender: FDA-Public Use
  Company Number: US-BIOGENIDEC-2011BI039968

PATIENT
  Age: 46 Year
  Sex: Female

DRUGS (2)
  1. TRAMADOL HCL [Concomitant]
     Indication: PAIN
  2. AVONEX [Suspect]
     Indication: MULTIPLE SCLEROSIS
     Route: 030
     Dates: start: 20110310

REACTIONS (4)
  - PAIN IN EXTREMITY [None]
  - MUSCLE SPASMS [None]
  - BACK PAIN [None]
  - INJECTION SITE HAEMATOMA [None]
